FAERS Safety Report 8196286-0 (Version None)
Quarter: 2012Q1

REPORT INFORMATION
  Report Type: 
  Country: None (occurrence: None)
  Receive Date: 20120306
  Receipt Date: 20120220
  Transmission Date: 20120608
  Serious: Yes (Other)
  Sender: FDA-Public Use
  Company Number: DSA_55275_2012

PATIENT
  Sex: Female

DRUGS (2)
  1. ELIDEL [Suspect]
     Indication: ECZEMA
     Dosage: DF, BID TOPICAL
     Route: 061
     Dates: start: 20120203, end: 20120208
  2. ROZEX [Concomitant]

REACTIONS (5)
  - APPLICATION SITE PUSTULES [None]
  - APPLICATION SITE INFLAMMATION [None]
  - BURNING SENSATION [None]
  - HYPERSENSITIVITY [None]
  - APPLICATION SITE ERYTHEMA [None]
